FAERS Safety Report 6695986-9 (Version None)
Quarter: 2010Q2

REPORT INFORMATION
  Report Type: 
  Country: None (occurrence: None)
  Receive Date: 20100423
  Receipt Date: 20100423
  Transmission Date: 20101027
  Serious: Yes (Other)
  Sender: FDA-Public Use
  Company Number: None

PATIENT
  Age: 35 Year
  Sex: Female
  Weight: 56.246 kg

DRUGS (1)
  1. LAMICTAL [Suspect]
     Indication: ANXIETY
     Dosage: 25MG 1 DAILY PO, 2 DOSES
     Route: 048
     Dates: start: 20100415, end: 20100416

REACTIONS (7)
  - AMNESIA [None]
  - CRYING [None]
  - DEPRESSION [None]
  - SOMNOLENCE [None]
  - STARING [None]
  - THINKING ABNORMAL [None]
  - VISUAL IMPAIRMENT [None]
